FAERS Safety Report 7978811-5 (Version None)
Quarter: 2011Q4

REPORT INFORMATION
  Report Type: 
  Country: None (occurrence: None)
  Receive Date: 20111207
  Receipt Date: 20111202
  Transmission Date: 20120403
  Serious: Yes (Hospitalization, Disabling, Other)
  Sender: FDA-Public Use
  Company Number: 2009SP040884

PATIENT
  Age: 36 Year
  Sex: Female
  Weight: 63.5036 kg

DRUGS (3)
  1. MARIJUANA [Concomitant]
  2. NUVARING [Suspect]
     Indication: CONTRACEPTION
     Dosage: VAG
     Route: 067
     Dates: start: 20080101, end: 20090330
  3. OMEPRAZOLE [Concomitant]

REACTIONS (25)
  - THROMBOSIS [None]
  - OVERWEIGHT [None]
  - CEREBROVASCULAR ACCIDENT [None]
  - DYSARTHRIA [None]
  - RECTAL HAEMORRHAGE [None]
  - BRAIN INJURY [None]
  - CAROTID ARTERY STENOSIS [None]
  - INJURY [None]
  - HYPERLIPIDAEMIA [None]
  - JOINT INJURY [None]
  - ANAEMIA [None]
  - ABDOMINAL PAIN UPPER [None]
  - BRONCHITIS [None]
  - HYPERTRIGLYCERIDAEMIA [None]
  - DYSPNOEA [None]
  - PERIPHERAL VASCULAR DISORDER [None]
  - BLOOD CHOLESTEROL INCREASED [None]
  - PETECHIAE [None]
  - DRUG DEPENDENCE [None]
  - ARTHRALGIA [None]
  - GENERAL PHYSICAL CONDITION ABNORMAL [None]
  - CAROTID ARTERY THROMBOSIS [None]
  - MUSCULOSKELETAL PAIN [None]
  - SINUSITIS [None]
  - CEREBRAL INFARCTION [None]
